FAERS Safety Report 6021655-4 (Version None)
Quarter: 2008Q4

REPORT INFORMATION
  Report Type: 
  Country: None (occurrence: None)
  Receive Date: 20081229
  Receipt Date: 20081223
  Transmission Date: 20090506
  Serious: Yes (Death, Life-Threatening, Hospitalization)
  Sender: FDA-Public Use
  Company Number: HK-SANOFI-SYNTHELABO-F01200801844

PATIENT
  Sex: Male

DRUGS (3)
  1. CAPECITABINE [Suspect]
     Dosage: 800 MG ON DAYS 1 TO14
     Route: 048
     Dates: end: 20081129
  2. OXALIPLATIN [Suspect]
     Indication: COLORECTAL CANCER METASTATIC
     Route: 041
     Dates: start: 20081129, end: 20081129
  3. ERLOTINIB [Suspect]
     Dosage: 25 MG ON ALTERNATE DAYS 1 TO 14, THEN CONTINUOUSLY ON DAYS15-21
     Route: 048
     Dates: start: 20080908, end: 20081129

REACTIONS (3)
  - CARDIAC ARREST [None]
  - DIARRHOEA [None]
  - PNEUMONIA ASPIRATION [None]
